FAERS Safety Report 10254734 (Version 1)
Quarter: 2014Q2

REPORT INFORMATION
  Report Type: Spontaneous
  Country: US (occurrence: US)
  Receive Date: 20140624
  Receipt Date: 20140624
  Transmission Date: 20141212
  Serious: Yes (Other)
  Sender: FDA-Public Use
  Company Number: US-BAYER-2014-092081

PATIENT
  Age: 58 Year
  Sex: Female

DRUGS (1)
  1. MAGNEVIST [Suspect]
     Dosage: UNK
     Dates: start: 199308

REACTIONS (11)
  - Anaphylactic shock [None]
  - Swollen tongue [None]
  - Dry mouth [None]
  - Palpitations [None]
  - Abasia [None]
  - Motor dysfunction [None]
  - Sensory disturbance [None]
  - Lacrimation increased [None]
  - Rhinorrhoea [None]
  - Change of bowel habit [None]
  - Urine abnormality [None]
